FAERS Safety Report 8476948-8 (Version None)
Quarter: 2012Q2

REPORT INFORMATION
  Report Type: 
  Country: None (occurrence: None)
  Receive Date: 20120629
  Receipt Date: 20120621
  Transmission Date: 20120825
  Serious: No
  Sender: FDA-Public Use
  Company Number: US-BIOGENIDEC-2012BI022386

PATIENT
  Sex: Male

DRUGS (2)
  1. TYSABRI [Suspect]
     Indication: MULTIPLE SCLEROSIS
     Route: 042
     Dates: start: 20090309, end: 20101129
  2. TYSABRI [Suspect]
     Route: 042
     Dates: start: 20110504, end: 20120613

REACTIONS (1)
  - DRUG INEFFECTIVE [None]
